FAERS Safety Report 23950608 (Version 1)
Quarter: 2024Q2

REPORT INFORMATION
  Report Type: Spontaneous
  Country: IT (occurrence: IT)
  Receive Date: 20240607
  Receipt Date: 20240607
  Transmission Date: 20240716
  Serious: Yes (Other)
  Sender: FDA-Public Use
  Company Number: IT-MINISAL02-975568

PATIENT
  Age: 33 Year
  Sex: Female

DRUGS (3)
  1. OLANZAPINE [Suspect]
     Active Substance: OLANZAPINE
     Indication: Substance abuse
     Dosage: 110 MILLIGRAM, 1 TOTAL
     Route: 048
     Dates: start: 20231114, end: 20231114
  2. PREGABALIN [Concomitant]
     Active Substance: PREGABALIN
     Indication: Product used for unknown indication
     Dosage: 50 MILLIGRAM, DAILY
     Route: 048
  3. PAROXETINE [Concomitant]
     Active Substance: PAROXETINE
     Indication: Product used for unknown indication
     Dosage: 10 MILLIGRAM, DAILY
     Route: 048

REACTIONS (2)
  - Sopor [Recovered/Resolved]
  - Substance abuse [Recovered/Resolved]

NARRATIVE: CASE EVENT DATE: 20231114
